FAERS Safety Report 7512798-4 (Version None)
Quarter: 2011Q2

REPORT INFORMATION
  Report Type: 
  Country: None (occurrence: None)
  Receive Date: 20110531
  Receipt Date: 20110525
  Transmission Date: 20111010
  Serious: Yes (Hospitalization)
  Sender: FDA-Public Use
  Company Number: B0721723A

PATIENT
  Sex: Female

DRUGS (1)
  1. ARIXTRA [Suspect]
     Route: 058
     Dates: end: 20100709

REACTIONS (6)
  - HAEMATOMA INFECTION [None]
  - HAEMODYNAMIC INSTABILITY [None]
  - ANURIA [None]
  - MUSCLE HAEMORRHAGE [None]
  - ANAEMIA [None]
  - TACHYCARDIA [None]
